FAERS Safety Report 19191507 (Version 1)
Quarter: 2021Q2

REPORT INFORMATION
  Report Type: Spontaneous
  Country: DE (occurrence: DE)
  Receive Date: 20210428
  Receipt Date: 20210428
  Transmission Date: 20210717
  Serious: Yes (Other)
  Sender: FDA-Public Use
  Company Number: DE-PFIZER INC-2021420359

PATIENT

DRUGS (1)
  1. CYTOTEC [Suspect]
     Active Substance: MISOPROSTOL
     Indication: LABOUR INDUCTION
     Dosage: TWICE A FEW HOURS APART
     Route: 064
     Dates: start: 20130721, end: 20130721

REACTIONS (2)
  - Cyanosis neonatal [Unknown]
  - Foetal exposure during delivery [Unknown]

NARRATIVE: CASE EVENT DATE: 20130721
